FAERS Safety Report 15148430 (Version 1)
Quarter: 2018Q3

REPORT INFORMATION
  Report Type: Spontaneous
  Country: US (occurrence: US)
  Receive Date: 20180716
  Receipt Date: 20180716
  Transmission Date: 20181010
  Serious: Yes (Other)
  Sender: FDA-Public Use
  Company Number: US-SA-2018SA189488

PATIENT
  Sex: Male

DRUGS (1)
  1. DUPIXENT [Suspect]
     Active Substance: DUPILUMAB
     Indication: DERMATITIS ATOPIC
     Dosage: 300 MG/2 ML, QOW
     Route: 058
     Dates: start: 20180221

REACTIONS (3)
  - Lower respiratory tract infection [Unknown]
  - Injury [Unknown]
  - Multiple fractures [Unknown]

NARRATIVE: CASE EVENT DATE: 20180615
